FAERS Safety Report 12952338 (Version 1)
Quarter: 2016Q4

REPORT INFORMATION
  Report Type: Spontaneous
  Country: US (occurrence: US)
  Receive Date: 20161117
  Receipt Date: 20161117
  Transmission Date: 20170207
  Serious: Yes (Other)
  Sender: FDA-Public Use
  Company Number: US-AMGEN-USASP2016159647

PATIENT
  Age: 65 Year
  Sex: Male

DRUGS (1)
  1. XGEVA [Suspect]
     Active Substance: DENOSUMAB
     Indication: PROSTATE CANCER METASTATIC
     Dosage: UNK, QMO
     Route: 065
     Dates: start: 20131004

REACTIONS (4)
  - Bone loss [Unknown]
  - Tooth disorder [Unknown]
  - Toothache [Unknown]
  - Tooth loss [Unknown]
